FAERS Safety Report 13092065 (Version 4)
Quarter: 2017Q1

REPORT INFORMATION
  Report Type: Report from Study
  Country: CN (occurrence: CN)
  Receive Date: 20170106
  Receipt Date: 20170127
  Transmission Date: 20170428
  Serious: Yes (Death, Hospitalization)
  Sender: FDA-Public Use
  Company Number: CN-ROCHE-1875203

PATIENT
  Age: 48 Year
  Sex: Female
  Weight: 67.6 kg

DRUGS (3)
  1. CODEINE PHOSPHATE [Concomitant]
     Active Substance: CODEINE PHOSPHATE
     Indication: COUGH
     Route: 065
     Dates: start: 20161222
  2. ATEZOLIZUMAB [Suspect]
     Active Substance: ATEZOLIZUMAB
     Indication: NON-SMALL CELL LUNG CANCER
     Dosage: MOST RECENT DOSE?ON 18/JAN/2017, THE PATIENT RECEIVED MOST RECENT DOSE OF ATEZOLIZUMAB PRIOR TO THE
     Route: 042
     Dates: start: 20161223
  3. DICLOFENAC SODIUM. [Concomitant]
     Active Substance: DICLOFENAC SODIUM
     Indication: PAIN
     Dosage: DUAL RELEASE ENTERIC-COATED CAPSULES
     Route: 065
     Dates: start: 20161221

REACTIONS (3)
  - Pneumonia [Recovered/Resolved]
  - Haemoptysis [Fatal]
  - Bronchial fistula [Recovering/Resolving]

NARRATIVE: CASE EVENT DATE: 20161228
